FAERS Safety Report 7972864-6 (Version None)
Quarter: 2011Q4

REPORT INFORMATION
  Report Type: 
  Country: None (occurrence: None)
  Receive Date: 20111213
  Receipt Date: 20111208
  Transmission Date: 20120403
  Serious: Yes (Death)
  Sender: FDA-Public Use
  Company Number: GB-ROCHE-1014730

PATIENT
  Sex: Male

DRUGS (11)
  1. DEXAMETHASONE [Concomitant]
     Dates: start: 20100309
  2. PERINDOPRIL ERBUMINE [Concomitant]
  3. SOTALOL HCL [Concomitant]
  4. SIMVASTATIN [Concomitant]
  5. PERINDOPRIL [Concomitant]
  6. OMEPRAZOLE [Concomitant]
  7. ASPIRIN [Concomitant]
  8. LUCENTIS [Suspect]
     Indication: CHOROIDAL NEOVASCULARISATION
     Route: 050
     Dates: start: 20090820
  9. DIGOXIN [Concomitant]
  10. BUMETANIDE [Concomitant]
  11. ACETAMINOPHEN [Concomitant]

REACTIONS (3)
  - CHOLEDOCHOLITHOTOMY [None]
  - DEATH [None]
  - STENT PLACEMENT [None]
